FAERS Safety Report 16814763 (Version 1)
Quarter: 2019Q3

REPORT INFORMATION
  Report Type: Spontaneous
  Country: GB (occurrence: GB)
  Receive Date: 20190917
  Receipt Date: 20190917
  Transmission Date: 20191005
  Serious: Yes (Disabling)
  Sender: FDA-Public Use
  Company Number: GB-TEVA-2019-GB-1106993

PATIENT
  Age: 77 Year
  Sex: Female
  Weight: 83 kg

DRUGS (29)
  1. ATORVASTATIN [Concomitant]
     Active Substance: ATORVASTATIN
     Dosage: 1 DOSAGE FORM/ DAY
     Dates: start: 20190305
  2. AMOXICILLIN. [Concomitant]
     Active Substance: AMOXICILLIN
     Dosage: 3 DOSAGE FORM/ DAY/ 5 DAYS
     Dates: start: 20190617, end: 20190622
  3. ESOMEPRAZOLE. [Concomitant]
     Active Substance: ESOMEPRAZOLE MAGNESIUM
     Dosage: 2 DOSAGE FORM/ DAY
     Dates: start: 20190522
  4. TRAMADOL. [Concomitant]
     Active Substance: TRAMADOL
     Dosage: 3-4 TIMES A DAY, 1 DOSAGE FORM/ 28 DAYS
     Dates: start: 20190709, end: 20190806
  5. ALGINATES [Concomitant]
     Dosage: 10ML-20ML 4 TIMES/DAY/ 10 DAYS
     Dates: start: 20190722, end: 20190801
  6. QUININE [Concomitant]
     Active Substance: QUININE
     Dosage: EACH NIGHT, 1 DOSAGE FORM/ DAY
     Dates: start: 20190305
  7. RANITIDINE. [Suspect]
     Active Substance: RANITIDINE
     Dosage: 300MG/ DAY
     Dates: start: 20190708
  8. EMPAGLIFLOZIN [Concomitant]
     Active Substance: EMPAGLIFLOZIN
     Dosage: 1 DOSAGE FORM/ DAY
     Dates: start: 20190305
  9. DICLOFENAC DIETHYLAMINE [Concomitant]
     Active Substance: DICLOFENAC DIETHYLAMINE
     Dosage: APPLY 3 TIMES/DAY, 1 DOSAGE FORM
     Dates: start: 20190305
  10. METOCLOPRAMIDE. [Concomitant]
     Active Substance: METOCLOPRAMIDE
     Dosage: 3 DOSAGE FORM/ DAY/ 5 DAYS
     Dates: start: 20190624, end: 20190629
  11. EVOREL [Concomitant]
     Dosage: AS DIRECTED
     Dates: start: 20190305
  12. CETIRIZINE [Concomitant]
     Active Substance: CETIRIZINE HYDROCHLORIDE
     Dosage: 1 DOSAGE FORM/ DAY
     Dates: start: 20190305
  13. ACIDEX [Concomitant]
     Active Substance: CALCIUM CARBONATE\SODIUM ALGINATE\SODIUM BICARBONATE
     Dosage: 4 TIMES/DAY, 10 ML/ 12 DAYS
     Dates: start: 20190618, end: 20190630
  14. CLENIL MODULITE [Concomitant]
     Active Substance: BECLOMETHASONE DIPROPIONATE
     Dosage: 2 DOSAGE FORM/ DAY
     Route: 055
     Dates: start: 20190305
  15. ZAPAIN [Concomitant]
     Active Substance: ACETAMINOPHEN\CODEINE PHOSPHATE
     Dosage: TAKE 1 OR 2 ,4 TIMES/DAY
     Dates: start: 20190305
  16. DIAZEPAM. [Concomitant]
     Active Substance: DIAZEPAM
     Dosage: AT NIGHT, 1 DOSAGE FORM/ DAY
     Dates: start: 20190522, end: 20190523
  17. CARBOCISTEINE [Concomitant]
     Active Substance: CARBOCYSTEINE
     Dosage: 2 DOSAGE FORM/ DAY
     Dates: start: 20190305
  18. ACETYLSALICYLIC ACID [Concomitant]
     Active Substance: ASPIRIN
     Dosage: 1 DOSAGE FORM/ DAY
     Dates: start: 20190305
  19. CETRABEN EMOLLIENT CREAM [Concomitant]
     Dosage: USE AS MOISTURISER
     Dates: start: 20190819
  20. PARACETAMOL [Concomitant]
     Active Substance: ACETAMINOPHEN
     Dosage: TAKE ONE OR TWO TABLETS UP TO FOUR TIMES A DAY ...
     Dates: start: 20190305
  21. AMLODIPINE [Concomitant]
     Active Substance: AMLODIPINE BESYLATE
     Dosage: 1 DOSAGE FORM/ DAY
     Dates: start: 20190305
  22. VENTOLIN [Concomitant]
     Active Substance: ALBUTEROL SULFATE
     Dosage: 2 DOSAGE FORM
     Route: 055
     Dates: start: 20190305
  23. PROCHLORPERAZINE. [Concomitant]
     Active Substance: PROCHLORPERAZINE
     Dosage: 3 DOSAGE FORM/ DAY
     Dates: start: 20190305
  24. FLUCONAZOLE. [Concomitant]
     Active Substance: FLUCONAZOLE
     Dosage: AS DIRECTED, 1 DOSAGE FORM DAY
     Dates: start: 20190731, end: 20190801
  25. IRBESARTAN. [Concomitant]
     Active Substance: IRBESARTAN
     Dosage: 1 DOSAGE FORM/ DAYS
     Dates: start: 20190305
  26. ALGINATES [Concomitant]
     Dosage: AS DIRECTED
     Dates: start: 20190305
  27. CLOTRIMAZOLE. [Concomitant]
     Active Substance: CLOTRIMAZOLE
     Dosage: APPLY 2-3 TIMES/DAY
     Dates: start: 20190731
  28. PIROXICAM. [Concomitant]
     Active Substance: PIROXICAM
     Dosage: USE AS DIRECTED
     Dates: start: 20190305
  29. CHLORPHENAMINE [Concomitant]
     Active Substance: CHLORPHENIRAMINE MALEATE
     Dosage: TAKE ONE EVERY 4-6 HOURS AS DIRECTED, 1 DOSAGE FORM
     Dates: start: 20190819

REACTIONS (1)
  - Pruritus generalised [Not Recovered/Not Resolved]

NARRATIVE: CASE EVENT DATE: 20190819
